FAERS Safety Report 4872728-0 (Version None)
Quarter: 2006Q1

REPORT INFORMATION
  Report Type: 
  Country: None (occurrence: None)
  Receive Date: 20060105
  Receipt Date: 20051201
  Transmission Date: 20060701
  Serious: Yes (Death, Hospitalization)
  Sender: FDA-Public Use
  Company Number: US-AMGEN-US159896

PATIENT
  Sex: Female

DRUGS (9)
  1. ENBREL [Suspect]
     Indication: RHEUMATOID ARTHRITIS
     Route: 058
     Dates: start: 20030501, end: 20051129
  2. METHOTREXATE [Suspect]
     Indication: RHEUMATOID ARTHRITIS
     Route: 048
     Dates: start: 20021201, end: 20051129
  3. CELEBREX [Suspect]
     Indication: RHEUMATOID ARTHRITIS
     Route: 048
     Dates: start: 19990601, end: 20051129
  4. FOLIC ACID [Concomitant]
     Route: 065
     Dates: start: 20021201, end: 20051129
  5. LASIX [Concomitant]
     Route: 065
     Dates: start: 20030509, end: 20051129
  6. POTASSIUM [Concomitant]
     Route: 065
     Dates: start: 20031119, end: 20051129
  7. CALCIUM GLUCONATE [Concomitant]
     Route: 065
     Dates: start: 20031119, end: 20051129
  8. REMERON [Concomitant]
     Route: 065
     Dates: start: 20030509, end: 20051129
  9. LAMICTAL [Concomitant]
     Route: 065
     Dates: start: 20031119, end: 20051129

REACTIONS (12)
  - CHEST X-RAY ABNORMAL [None]
  - DISSEMINATED INTRAVASCULAR COAGULATION [None]
  - HAEMATOCRIT DECREASED [None]
  - HAEMOGLOBIN DECREASED [None]
  - LEUKOPENIA [None]
  - METABOLIC ACIDOSIS [None]
  - MULTI-ORGAN DISORDER [None]
  - PNEUMONIA STREPTOCOCCAL [None]
  - PURPURA [None]
  - RESPIRATORY ACIDOSIS [None]
  - RESPIRATORY FAILURE [None]
  - SEPTIC SHOCK [None]
